FAERS Safety Report 12645796 (Version 1)
Quarter: 2016Q3

REPORT INFORMATION
  Report Type: Spontaneous
  Country: US (occurrence: US)
  Receive Date: 20160811
  Receipt Date: 20160811
  Transmission Date: 20161109
  Serious: No
  Sender: FDA-Public Use
  Company Number: US-ENDO PHARMACEUTICALS INC.-2016-000433

PATIENT
  Age: 65 Year
  Sex: Female
  Weight: 63.56 kg

DRUGS (2)
  1. PREDNISONE TABLETS [Suspect]
     Active Substance: PREDNISONE
     Indication: INFLAMMATION
     Route: 048
     Dates: start: 20160106
  2. PREDNISONE TABLETS [Suspect]
     Active Substance: PREDNISONE
     Indication: EAR INFECTION

REACTIONS (2)
  - Incorrect dose administered [Recovered/Resolved]
  - Insomnia [Recovered/Resolved]

NARRATIVE: CASE EVENT DATE: 20160106
